FAERS Safety Report 15384547 (Version 1)
Quarter: 2018Q3

REPORT INFORMATION
  Report Type: Spontaneous
  Country: ES (occurrence: ES)
  Receive Date: 20180914
  Receipt Date: 20180914
  Transmission Date: 20181010
  Serious: Yes (Hospitalization)
  Sender: FDA-Public Use
  Company Number: ES-TEVA-2018-ES-954307

PATIENT
  Age: 61 Year
  Sex: Female

DRUGS (12)
  1. VALSARTAN (7423A) [Concomitant]
     Active Substance: VALSARTAN
     Dosage: 160 MILLIGRAM DAILY; 1?0?0
     Route: 048
  2. ADIRO 100 [Concomitant]
     Active Substance: ASPIRIN
     Route: 048
  3. AMOXICILINA (108A) [Suspect]
     Active Substance: AMOXICILLIN
     Indication: ENDOCARDITIS
     Dosage: 1 GRAM EVERY 8 HOURS. INFECTIOUS 07/19/2018: ^SUSPEND THE ANTIBIOTIC A FEW DAYS AGO TO CARRY OUT HC
     Route: 048
     Dates: start: 20180625
  4. VALIUM [Concomitant]
     Active Substance: DIAZEPAM
     Dosage: 10 MILLIGRAM DAILY; 0?0?1
     Route: 048
  5. ACFOL [Concomitant]
     Active Substance: FOLIC ACID
     Dosage: 1?0?0
     Route: 048
  6. FERROSANOL [Concomitant]
     Active Substance: FERROUS GLUCONATE
     Dosage: 1?0?0
     Route: 048
  7. OMEPRAZOL (2141A) [Concomitant]
     Active Substance: OMEPRAZOLE
     Dosage: 20 MILLIGRAM DAILY; 1?0?0
     Route: 048
  8. ATORVASTATINA (7400A) [Concomitant]
     Active Substance: ATORVASTATIN
     Dosage: 20 MILLIGRAM DAILY; 0?0?1
     Route: 048
  9. DUAKLIR [Concomitant]
     Active Substance: ACLIDINIUM BROMIDE\FORMOTEROL FUMARATE
     Dosage: 1?0?1
     Route: 055
  10. NEURONTIN [Concomitant]
     Active Substance: GABAPENTIN
     Dosage: 1?0?1
     Route: 048
  11. ENANPLUS [Concomitant]
     Active Substance: DEXKETOPROFEN\TRAMADOL
     Dosage: 1?0?1
     Route: 048
  12. CLOPIDOGREL [Concomitant]
     Active Substance: CLOPIDOGREL BISULFATE
     Dosage: 75 MILLIGRAM DAILY; 0?1?0
     Route: 048

REACTIONS (2)
  - Pseudomembranous colitis [Recovering/Resolving]
  - Acute kidney injury [Recovered/Resolved]

NARRATIVE: CASE EVENT DATE: 201807
